FAERS Safety Report 9014561 (Version 1)
Quarter: 2013Q1

REPORT INFORMATION
  Report Type: Spontaneous
  Country: US (occurrence: US)
  Receive Date: 20130115
  Receipt Date: 20130115
  Transmission Date: 20140127
  Serious: Yes (Hospitalization)
  Sender: FDA-Public Use
  Company Number: US-MERCK-1301USA003579

PATIENT
  Age: 53 Year
  Sex: Female

DRUGS (20)
  1. SINGULAIR [Suspect]
  2. HIZENTRA [Suspect]
     Indication: HYPOGLOBULINAEMIA
     Route: 058
  3. TEMAZEPAM [Concomitant]
  4. CYMBALTA [Concomitant]
  5. TORSEMIDE [Concomitant]
  6. COMBIVENT [Concomitant]
  7. VALIUM [Concomitant]
  8. LAMICTAL [Concomitant]
  9. NEXIUM [Concomitant]
  10. ABILIFY [Concomitant]
  11. ALBUTEROL [Concomitant]
  12. BYSTOLIC [Concomitant]
  13. ULTRAM [Concomitant]
  14. VITAMIN D (UNSPECIFIED) [Concomitant]
  15. CYANOCOBALAMIN [Concomitant]
  16. ISOSORBIDE [Concomitant]
  17. DOXYCYCLINE [Concomitant]
  18. LEVAQUIN [Concomitant]
  19. ACETAMINOPHEN [Concomitant]
  20. LOVAZA [Concomitant]

REACTIONS (7)
  - Myocardial infarction [Unknown]
  - Infusion site pain [Unknown]
  - Infusion site oedema [Unknown]
  - Infusion site erythema [Unknown]
  - Hot flush [Unknown]
  - Dizziness [Unknown]
  - Chills [Unknown]
